FAERS Safety Report 19249476 (Version 2)
Quarter: 2022Q3

REPORT INFORMATION
  Report Type: Spontaneous
  Country: US (occurrence: US)
  Receive Date: 20210512
  Receipt Date: 20220914
  Transmission Date: 20221027
  Serious: Yes (Death, Other)
  Sender: FDA-Public Use
  Company Number: US-SA-SAC00000000279592

PATIENT
  Age: 59 Year
  Sex: Female

DRUGS (5)
  1. ZANTAC [Suspect]
     Active Substance: RANITIDINE HYDROCHLORIDE
     Indication: Erosive oesophagitis
     Dosage: 75 MG, QD
     Dates: start: 200001
  2. ZANTAC [Suspect]
     Active Substance: RANITIDINE HYDROCHLORIDE
     Indication: Dyspepsia
     Dosage: 150 MG, QD
  3. ZANTAC [Suspect]
     Active Substance: RANITIDINE HYDROCHLORIDE
     Indication: Gastric ulcer
     Dosage: 300 MG, QD
     Dates: end: 201803
  4. ZANTAC [Suspect]
     Active Substance: RANITIDINE HYDROCHLORIDE
     Indication: Intestinal ulcer
  5. ZANTAC [Suspect]
     Active Substance: RANITIDINE HYDROCHLORIDE
     Indication: Gastrinoma

REACTIONS (14)
  - Breast cancer stage IV [Fatal]
  - Colorectal cancer [Fatal]
  - Oesophageal carcinoma [Fatal]
  - Gastrointestinal carcinoma [Fatal]
  - Renal cancer [Fatal]
  - Hepatic cancer stage IV [Fatal]
  - Lung neoplasm malignant [Fatal]
  - Pancreatic carcinoma [Fatal]
  - Gastric cancer [Fatal]
  - Small intestine carcinoma [Fatal]
  - Brain neoplasm malignant [Fatal]
  - Tongue neoplasm malignant stage unspecified [Fatal]
  - Hepatic cancer metastatic [Fatal]
  - Squamous cell carcinoma [Fatal]

NARRATIVE: CASE EVENT DATE: 20180201
